FAERS Safety Report 5062885-8 (Version None)
Quarter: 2006Q3

REPORT INFORMATION
  Report Type: 
  Country: None (occurrence: None)
  Receive Date: 20060724
  Receipt Date: 20060710
  Transmission Date: 20061208
  Serious: Yes (Hospitalization, Other)
  Sender: FDA-Public Use
  Company Number: 2006074848

PATIENT
  Sex: Female

DRUGS (4)
  1. HALCION [Suspect]
     Indication: INSOMNIA
     Dosage: 0.125 MG (1 D), ORAL
     Route: 048
  2. DEPAS (ETIZOLAM) [Suspect]
     Indication: DRUG USE FOR UNKNOWN INDICATION
     Dosage: ORAL
     Route: 048
  3. ZOLPIDEM TARTRATE [Suspect]
     Indication: DRUG USE FOR UNKNOWN INDICATION
     Dosage: ORAL
     Route: 048
  4. MEILAX (ETHYL LOFLAZEPATE) [Concomitant]

REACTIONS (3)
  - DEPRESSED LEVEL OF CONSCIOUSNESS [None]
  - OVERDOSE [None]
  - SUICIDAL IDEATION [None]
